FAERS Safety Report 9857532 (Version 1)
Quarter: 2014Q1

REPORT INFORMATION
  Report Type: Spontaneous
  Country: GR (occurrence: GR)
  Receive Date: 20140131
  Receipt Date: 20140131
  Transmission Date: 20141002
  Serious: Yes (Death, Other)
  Sender: FDA-Public Use
  Company Number: PHHY2014GR008569

PATIENT
  Age: 44 Year
  Sex: Female

DRUGS (3)
  1. CICLOSPORIN [Suspect]
     Indication: IMMUNOSUPPRESSION
  2. AZATHIOPRINE [Suspect]
     Indication: IMMUNOSUPPRESSION
  3. CORTICOSTEROIDS [Suspect]
     Indication: IMMUNOSUPPRESSION

REACTIONS (4)
  - Non-Hodgkin^s lymphoma [Fatal]
  - Lymphadenopathy [Fatal]
  - Skin lesion [Fatal]
  - Epstein-Barr virus infection [Unknown]
